FAERS Safety Report 6202645-5 (Version None)
Quarter: 2009Q2

REPORT INFORMATION
  Report Type: 
  Country: None (occurrence: None)
  Receive Date: 20090526
  Receipt Date: 20090514
  Transmission Date: 20091009
  Serious: Yes (Hospitalization)
  Sender: FDA-Public Use
  Company Number: US-ELI_LILLY_AND_COMPANY-US200905003495

PATIENT
  Sex: Male

DRUGS (6)
  1. CYMBALTA [Suspect]
     Indication: DEPRESSION
     Dosage: 60 MG, 2/D
     Dates: start: 20070101, end: 20090313
  2. ZOLOFT [Concomitant]
     Indication: DEPRESSION
     Dates: end: 20070101
  3. DARVON [Concomitant]
  4. DEPAKOTE [Concomitant]
  5. DILANTIN [Concomitant]
  6. WARFARIN SODIUM [Concomitant]

REACTIONS (3)
  - ALCOHOL ABUSE [None]
  - COMA [None]
  - HEPATIC ENZYME INCREASED [None]
